FAERS Safety Report 7807150-8 (Version None)
Quarter: 2011Q4

REPORT INFORMATION
  Report Type: 
  Country: None (occurrence: None)
  Receive Date: 20111011
  Receipt Date: 20110927
  Transmission Date: 20120403
  Serious: Yes (Hospitalization, Other)
  Sender: FDA-Public Use
  Company Number: PHHY2011JP82713

PATIENT
  Age: 35 Year
  Sex: Male

DRUGS (5)
  1. PREDNISOLONE [Concomitant]
     Dosage: 60 MG, UNK
     Route: 048
  2. PREDNISOLONE [Concomitant]
     Dosage: 30 MG, UNK
     Route: 048
  3. CYCLOPHOSPHAMIDE [Concomitant]
     Dosage: UNK UKN, UNK
     Route: 048
  4. CYCLOSPORINE [Suspect]
     Indication: NEPHROTIC SYNDROME
     Dosage: UNK UKN, UNK
     Route: 048
  5. PREDNISOLONE [Concomitant]
     Dosage: 20 MG, UNK
     Route: 048

REACTIONS (2)
  - NEPHROTIC SYNDROME [None]
  - FOCAL SEGMENTAL GLOMERULOSCLEROSIS [None]
